FAERS Safety Report 5698240-7 (Version None)
Quarter: 2008Q2

REPORT INFORMATION
  Report Type: 
  Country: None (occurrence: None)
  Receive Date: 20080408
  Receipt Date: 20080328
  Transmission Date: 20081010
  Serious: Yes (Hospitalization, Other)
  Sender: FDA-Public Use
  Company Number: BA-PFIZER INC-2008025904

PATIENT
  Age: 59 Year
  Sex: Male
  Weight: 100 kg

DRUGS (3)
  1. XALATAN [Suspect]
     Indication: INTRAOCULAR PRESSURE INCREASED
     Route: 031
     Dates: start: 20080314, end: 20080316
  2. TIMALEN [Concomitant]
     Route: 031
  3. AZOPT [Concomitant]
     Route: 031
     Dates: start: 20080311, end: 20080316

REACTIONS (6)
  - CONJUNCTIVAL HYPERAEMIA [None]
  - CONJUNCTIVAL OEDEMA [None]
  - ERYTHEMA OF EYELID [None]
  - EYELID OEDEMA [None]
  - EYELIDS PRURITUS [None]
  - HYPERSENSITIVITY [None]
